FAERS Safety Report 5061866-8 (Version None)
Quarter: 2006Q3

REPORT INFORMATION
  Report Type: 
  Country: None (occurrence: None)
  Receive Date: 20060703
  Receipt Date: 20060209
  Transmission Date: 20061208
  Serious: No
  Sender: FDA-Public Use
  Company Number: 2006S1001238

PATIENT
  Age: 66 Year
  Sex: Male

DRUGS (7)
  1. CLOZAPINE [Suspect]
     Dosage: SEE IMAGE
     Route: 048
     Dates: start: 20051001, end: 20060208
  2. CLOZAPINE [Suspect]
     Dosage: SEE IMAGE
     Route: 048
     Dates: start: 20060209, end: 20060303
  3. ESCITALOPRAM [Concomitant]
  4. VALPROATE SODIUM [Concomitant]
  5. PANTOPRAZOLE SODIUM [Concomitant]
  6. METOCLOPRAMIDE [Concomitant]
  7. FOLIC ACID [Concomitant]

REACTIONS (1)
  - GRANULOCYTOPENIA [None]
